FAERS Safety Report 19095008 (Version 1)
Quarter: 2021Q2

REPORT INFORMATION
  Report Type: Spontaneous
  Country: US (occurrence: US)
  Receive Date: 20210406
  Receipt Date: 20210406
  Transmission Date: 20210717
  Serious: No
  Sender: FDA-Public Use
  Company Number: US-SA-2021SA111501

PATIENT
  Age: 44 Year
  Sex: Female

DRUGS (10)
  1. EMGALITY [Concomitant]
     Active Substance: GALCANEZUMAB-GNLM
  2. DUPIXENT [Suspect]
     Active Substance: DUPILUMAB
     Indication: DERMATITIS ATOPIC
     Route: 058
     Dates: start: 20190323
  3. QUETIAPINE. [Concomitant]
     Active Substance: QUETIAPINE
  4. CYCLOBENZAPRIN [Concomitant]
     Active Substance: CYCLOBENZAPRINE
  5. ZIPRASIDONE. [Concomitant]
     Active Substance: ZIPRASIDONE
  6. CARBAMAZEPIN [Concomitant]
     Active Substance: CARBAMAZEPINE
  7. LAMOTRIGINE. [Concomitant]
     Active Substance: LAMOTRIGINE
  8. GABAPENTIN. [Concomitant]
     Active Substance: GABAPENTIN
  9. MODERNA COVID?19 VACCINE [Suspect]
     Active Substance: CX-024414
  10. CLONAZEPAM. [Concomitant]
     Active Substance: CLONAZEPAM

REACTIONS (1)
  - Eczema [Recovered/Resolved]

NARRATIVE: CASE EVENT DATE: 20210221
